FAERS Safety Report 7858582-3 (Version None)
Quarter: 2011Q4

REPORT INFORMATION
  Report Type: 
  Country: None (occurrence: None)
  Receive Date: 20111027
  Receipt Date: 20110127
  Transmission Date: 20120403
  Serious: Yes (Hospitalization)
  Sender: FDA-Public Use
  Company Number: US-BAYER-2011-011049

PATIENT
  Sex: Female

DRUGS (1)
  1. INTERFERON BETA-1B [Suspect]
     Indication: MULTIPLE SCLEROSIS
     Dosage: 8 MIU, QOD
     Route: 058
     Dates: start: 20101217

REACTIONS (7)
  - SEPSIS [None]
  - INJECTION SITE ERYTHEMA [None]
  - DIARRHOEA [None]
  - PNEUMONIA [None]
  - ABDOMINAL DISCOMFORT [None]
  - TACHYCARDIA [None]
  - VOMITING [None]
